FAERS Safety Report 23682119 (Version 1)
Quarter: 2024Q1

REPORT INFORMATION
  Report Type: Spontaneous
  Country: US (occurrence: None)
  Receive Date: 20240327
  Receipt Date: 20240327
  Transmission Date: 20240410
  Serious: No
  Sender: FDA-Public Use
  Company Number: None

PATIENT
  Age: 4 Year
  Sex: Female
  Weight: 24.75 kg

DRUGS (1)
  1. CYPROHEPTADINE [Suspect]
     Active Substance: CYPROHEPTADINE
     Indication: Migraine
     Dosage: OTHER QUANTITY : 5 ML;?FREQUENCY : TWICE A DAY;?
     Route: 048
     Dates: start: 20231001, end: 20240301

REACTIONS (4)
  - Aggression [None]
  - Behaviour disorder [None]
  - Therapy change [None]
  - Therapy cessation [None]

NARRATIVE: CASE EVENT DATE: 20231001
